FAERS Safety Report 21367581 (Version 1)
Quarter: 2022Q3

REPORT INFORMATION
  Report Type: Report from Study
  Country: DE (occurrence: DE)
  Receive Date: 20220923
  Receipt Date: 20220923
  Transmission Date: 20221027
  Serious: Yes (Hospitalization)
  Sender: FDA-Public Use
  Company Number: DE-JNJFOC-20170424340

PATIENT
  Age: 69 Year
  Sex: Male

DRUGS (18)
  1. DEXAMETHASONE [Suspect]
     Active Substance: DEXAMETHASONE
     Indication: Plasma cell myeloma
     Dosage: THERAPY END DATE :NASK, UNIT DOSE 12MG, DURATION : 74 MG, FREQUENCY TIME : 1 DAY
     Dates: start: 20170310
  2. DEXAMETHASONE [Suspect]
     Active Substance: DEXAMETHASONE
     Dosage: UNIT DOSE : 12 MG, DURATION : 74 DAYS, FREQUENCY TIME : 1 DAY, ADDITIONAL INFO: ON DAYS 1, 2, 4, 8,
     Dates: start: 20161115, end: 20170128
  3. VENETOCLAX [Suspect]
     Active Substance: VENETOCLAX
     Indication: Plasma cell myeloma
     Dosage: UNIT DOSE : 800 MG, FREQUENCY TIME : 1 DAY, DURATION : 83 DAYS
     Dates: start: 20161115, end: 20170206
  4. VENETOCLAX [Suspect]
     Active Substance: VENETOCLAX
     Dosage: UNIT DOSE : 800 MG, FREQUENCY TIME : 1 DAY, DURATION : 83 DAYS, THERAPY END : NASK
     Dates: start: 20170310
  5. VELCADE [Suspect]
     Active Substance: BORTEZOMIB
     Indication: Plasma cell myeloma
     Dosage: DAYS 1, 4, 8 AND 11 OF 21 DAY CYCLE, UNIT DOSE :2.8 MG, DURATION : 73 DAYS, THERAPY END DATE : NASK,
     Dates: start: 20170310
  6. VELCADE [Suspect]
     Active Substance: BORTEZOMIB
     Dosage: DAYS 1, 4, 8 AND 11 OF 21 DAY CYCLE, UNIT DOSE : 2.8 MG, DURATION : 73 DAYS,
     Dates: start: 20161115, end: 20170127
  7. BISACODYL [Concomitant]
     Active Substance: BISACODYL
     Indication: Constipation
     Dosage: FREQUENCY TIME 1 AS REQUIRED, UNIT DOSE : 20 DF,TRADE NAME- LAXANS
     Dates: start: 20161206
  8. NADROPARIN CALCIUM [Concomitant]
     Active Substance: NADROPARIN CALCIUM
     Indication: Atrial fibrillation
     Dosage: UNIT DOSE : 0.85 ML, FREQUENCY TIME: 1 DAY
     Dates: start: 20161216
  9. BISOPROLOL [Concomitant]
     Active Substance: BISOPROLOL
     Indication: Hypertension
     Dosage: UNIT DOSE :5 MG, FREQUENCY TIME : 0.5 DAYS
     Dates: start: 2008
  10. ZOMETA [Concomitant]
     Active Substance: ZOLEDRONIC ACID
     Indication: Prophylaxis
     Dosage: UNIT DOSE : 4 MG, FREQUENCY TIME : 1 MONTH
     Dates: start: 20170106
  11. ACETAMINOPHEN [Concomitant]
     Active Substance: ACETAMINOPHEN
     Indication: Headache
     Dosage: UNIT DOSE : 1GM, FREQUENCY TIME : AS REQUIRED
     Dates: start: 20170104
  12. ACYCLOVIR [Concomitant]
     Active Substance: ACYCLOVIR
     Indication: Antiviral prophylaxis
     Dosage: UNIT DOSE : 200 MG, FREQUENCY TIME : 0.5 DAYS, DURATION : 50 DAYS
     Dates: start: 20170103
  13. ACYCLOVIR [Concomitant]
     Active Substance: ACYCLOVIR
     Dosage: UNIT DOSE :400 MG, FREQUENCY TIME : 0.5 DAYS, DURATION : 50 DAYS
     Dates: start: 20161115, end: 20170102
  14. SULFAMETHOXAZOLE\TRIMETHOPRIM [Concomitant]
     Active Substance: SULFAMETHOXAZOLE\TRIMETHOPRIM
     Indication: Infection prophylaxis
     Dosage: UNIT DOSE : 960 MG, FREQUENCY TIME : 1 DAY, DURATION :12 DAYS
     Dates: start: 20161223, end: 20170102
  15. SULFAMETHOXAZOLE\TRIMETHOPRIM [Concomitant]
     Active Substance: SULFAMETHOXAZOLE\TRIMETHOPRIM
     Dosage: UNIT DOSE : 480 MG, FREQUENCY TIME 0.5 WEEK, DURATION : 12 DAYS
     Dates: start: 20170103
  16. SULFAMETHOXAZOLE\TRIMETHOPRIM [Concomitant]
     Active Substance: SULFAMETHOXAZOLE\TRIMETHOPRIM
     Dosage: UNIT DOSE : 960 MG, FREQUENCY TIME : 0.33 WEEKS, DURATION : 12 DAYS
     Dates: start: 201601, end: 20161222
  17. METOCLOPRAMIDE [Concomitant]
     Active Substance: METOCLOPRAMIDE
     Indication: Prophylaxis of nausea and vomiting
     Dosage: UNIT DOSE : 20 DF, FREQUENCY TIME : AS REQUIRED
     Dates: start: 20161115
  18. MOVICOL [Concomitant]
     Active Substance: POLYETHYLENE GLYCOL 3350\POTASSIUM CHLORIDE\SODIUM BICARBONATE\SODIUM CHLORIDE
     Indication: Constipation
     Dosage: UNIT DOSE : 1 DF, FREQUENCY TIME : AS REQUIRED
     Dates: start: 20170106

REACTIONS (1)
  - Influenza [Recovered/Resolved]

NARRATIVE: CASE EVENT DATE: 20170206
